FAERS Safety Report 23581773 (Version 1)
Quarter: 2024Q1

REPORT INFORMATION
  Report Type: Spontaneous
  Country: US (occurrence: US)
  Receive Date: 20240229
  Receipt Date: 20240229
  Transmission Date: 20240410
  Serious: Yes (Hospitalization)
  Sender: FDA-Public Use
  Company Number: US-Kaleo, Inc.-2024KL000002

PATIENT
  Age: 14 Year
  Sex: Male
  Weight: 53.6 kg

DRUGS (1)
  1. AUVI-Q [Suspect]
     Active Substance: EPINEPHRINE
     Indication: Anaphylactic reaction
     Dates: start: 20240219, end: 20240219

REACTIONS (5)
  - Swelling face [Recovered/Resolved]
  - Hypoperfusion [Recovered/Resolved]
  - Dizziness postural [Recovered/Resolved]
  - Blood pressure increased [Recovered/Resolved]
  - Heart rate increased [Recovered/Resolved]

NARRATIVE: CASE EVENT DATE: 20240219
